FAERS Safety Report 23459763 (Version 1)
Quarter: 2024Q1

REPORT INFORMATION
  Report Type: Spontaneous
  Country: IR (occurrence: IR)
  Receive Date: 20240131
  Receipt Date: 20240131
  Transmission Date: 20240409
  Serious: Yes (Hospitalization, Other)
  Sender: FDA-Public Use
  Company Number: IR-EPICPHARMA-IR-2024EPCLIT00225

PATIENT
  Age: 13 Year
  Sex: Male

DRUGS (8)
  1. LIDOCAINE HYDROCHLORIDE [Suspect]
     Active Substance: LIDOCAINE HYDROCHLORIDE
     Indication: Anaesthesia
     Dosage: 1CC
     Route: 042
  2. MIDAZOLAM HYDROCHLORIDE [Suspect]
     Active Substance: MIDAZOLAM HYDROCHLORIDE
     Indication: Anaesthesia
     Route: 042
  3. MIDAZOLAM HYDROCHLORIDE [Suspect]
     Active Substance: MIDAZOLAM HYDROCHLORIDE
     Dosage: 1 MCG/KG/MIN
     Route: 065
  4. SEVOFLURANE [Suspect]
     Active Substance: SEVOFLURANE
     Indication: Anaesthesia
     Dosage: OXYGEN
     Route: 065
  5. SEVOFLURANE [Suspect]
     Active Substance: SEVOFLURANE
     Dosage: IN THE AIR
     Route: 065
  6. FENTANYL [Suspect]
     Active Substance: FENTANYL\FENTANYL CITRATE
     Indication: Anaesthesia
     Dosage: 70 MICROGRAM
     Route: 042
  7. PROPOFOL [Suspect]
     Active Substance: PROPOFOL
     Indication: Anaesthesia
     Route: 042
  8. THIOPENTAL [Suspect]
     Active Substance: THIOPENTAL
     Indication: Anaesthesia
     Route: 042

REACTIONS (2)
  - Guillain-Barre syndrome [Recovered/Resolved]
  - Condition aggravated [Recovered/Resolved]
